FAERS Safety Report 4709313-7 (Version None)
Quarter: 2005Q3

REPORT INFORMATION
  Report Type: 
  Country: None (occurrence: None)
  Receive Date: 20050706
  Receipt Date: 20050624
  Transmission Date: 20060218
  Serious: Yes (Other)
  Sender: FDA-Public Use
  Company Number: 2005US000839

PATIENT
  Age: 85 Year
  Sex: Female

DRUGS (2)
  1. ADENOCARD [Suspect]
     Dosage: 600 MG, TOTAL DOSE, IV NOS
     Route: 042
     Dates: start: 20050516, end: 20050516
  2. SODIUM CHLORIDE 0.9% [Suspect]
     Dosage: IV NOS
     Route: 042
     Dates: start: 20050516, end: 20050516

REACTIONS (5)
  - HYPERTHERMIA [None]
  - INFUSION RELATED REACTION [None]
  - POOR PERIPHERAL CIRCULATION [None]
  - PYREXIA [None]
  - TREMOR [None]
